FAERS Safety Report 9125948 (Version 5)
Quarter: 2013Q4

REPORT INFORMATION
  Report Type: Spontaneous
  Country: US (occurrence: US)
  Receive Date: 20130117
  Receipt Date: 20131212
  Transmission Date: 20140711
  Serious: Yes (Hospitalization, Other)
  Sender: FDA-Public Use
  Company Number: US-JNJFOC-20130104040

PATIENT
  Age: 63 Year
  Sex: Female

DRUGS (8)
  1. SIMPONI [Suspect]
     Indication: RHEUMATOID ARTHRITIS
     Route: 058
     Dates: start: 20111121, end: 20121128
  2. PREDNISONE [Concomitant]
     Indication: RHEUMATOID ARTHRITIS
     Route: 048
     Dates: start: 2008, end: 20121128
  3. NEXIUM [Concomitant]
     Indication: RHEUMATOID ARTHRITIS
     Route: 048
     Dates: start: 2006, end: 20121128
  4. MULTI VIT [Concomitant]
     Route: 065
     Dates: start: 2004
  5. CO-Q10 [Concomitant]
     Route: 065
     Dates: start: 2009
  6. VIT D [Concomitant]
     Route: 065
     Dates: start: 2009
  7. VIT C [Concomitant]
     Route: 065
     Dates: start: 2004
  8. FISH OIL [Concomitant]
     Route: 065
     Dates: start: 2004

REACTIONS (7)
  - Multiple sclerosis [Recovering/Resolving]
  - Intervertebral disc degeneration [Recovering/Resolving]
  - Osteoarthritis [Recovering/Resolving]
  - Spinal column stenosis [Recovering/Resolving]
  - Herpes zoster [Recovered/Resolved]
  - Sciatica [Recovering/Resolving]
  - Adverse event [Unknown]
